FAERS Safety Report 9613252 (Version 1)
Quarter: 2013Q4

REPORT INFORMATION
  Report Type: Spontaneous
  Country: CA (occurrence: CA)
  Receive Date: 20131010
  Receipt Date: 20131010
  Transmission Date: 20140711
  Serious: Yes (Death)
  Sender: FDA-Public Use
  Company Number: CA-B.I. PHARMACEUTICALS,INC./RIDGEFIELD-2013-CN-01651CN

PATIENT
  Age: 67 Year
  Sex: Male

DRUGS (9)
  1. PRADAXA [Suspect]
     Indication: ATRIAL FIBRILLATION
     Dosage: 220 MG
     Dates: start: 20120516
  2. TIAZAC [Concomitant]
  3. VENTOLIN [Concomitant]
  4. CIPRALEX [Concomitant]
  5. METOPROLOL [Concomitant]
  6. DILANTIN [Concomitant]
  7. LIPITOR [Concomitant]
  8. TAMSULOSIN [Concomitant]
  9. PANTOLOC [Concomitant]

REACTIONS (1)
  - Pulmonary embolism [Fatal]
